FAERS Safety Report 21598213 (Version 1)
Quarter: 2022Q4

REPORT INFORMATION
  Report Type: Spontaneous
  Country: HR (occurrence: HR)
  Receive Date: 20221115
  Receipt Date: 20221115
  Transmission Date: 20230113
  Serious: Yes (Hospitalization, Other)
  Sender: FDA-Public Use
  Company Number: HR-VELOXIS PHARMACEUTICALS-2022VELHR-000331

PATIENT
  Age: 56 Year
  Sex: Male

DRUGS (3)
  1. TACROLIMUS [Suspect]
     Active Substance: TACROLIMUS
     Dosage: 1 MILLIGRAM X 2, LARGE DOSES
     Route: 065
  2. PREDNISONE [Suspect]
     Active Substance: PREDNISONE
     Indication: Prophylaxis against transplant rejection
     Dosage: 15 MILLIGRAM LARGE DOSES
     Route: 065
  3. MYCOPHENOLATE MOFETIL [Suspect]
     Active Substance: MYCOPHENOLATE MOFETIL
     Indication: Prophylaxis against transplant rejection
     Dosage: 750 MILLIGRAM X 2, LARGE DOSES
     Route: 065

REACTIONS (3)
  - Vaccination failure [Unknown]
  - COVID-19 [Recovered/Resolved]
  - Off label use [Unknown]

NARRATIVE: CASE EVENT DATE: 20211001
